FAERS Safety Report 13392359 (Version 1)
Quarter: 2017Q1

REPORT INFORMATION
  Report Type: Spontaneous
  Country: US (occurrence: US)
  Receive Date: 20170331
  Receipt Date: 20170331
  Transmission Date: 20170429
  Serious: No
  Sender: FDA-Public Use
  Company Number: US-BAYER-2017-061475

PATIENT
  Age: 85 Year
  Sex: Male
  Weight: 79.37 kg

DRUGS (12)
  1. BAYER LOW DOSE [Suspect]
     Active Substance: ASPIRIN
     Dosage: UNK
  2. PLAVIX [Concomitant]
     Active Substance: CLOPIDOGREL BISULFATE
  3. FISH OIL [Concomitant]
     Active Substance: FISH OIL
  4. ANTACID [CALCIUM CARBONATE] [Concomitant]
  5. VITAMIN D [Concomitant]
     Active Substance: CHOLECALCIFEROL
  6. BAYER ASPIRIN [Suspect]
     Active Substance: ASPIRIN
     Indication: PROPHYLAXIS
  7. MIRALAX [Suspect]
     Active Substance: POLYETHYLENE GLYCOL 3350
     Indication: CONSTIPATION
     Dosage: 1 DF (CAPFUL), QD
     Route: 048
     Dates: end: 201703
  8. COUMADIN [Concomitant]
     Active Substance: WARFARIN SODIUM
  9. BAYER ASPIRIN [Suspect]
     Active Substance: ASPIRIN
     Indication: THROMBOSIS PROPHYLAXIS
     Dosage: UNK (1/ 3 TIMES A WEEK)
     Route: 048
     Dates: end: 20080313
  10. PREGNENOLONE [Concomitant]
     Active Substance: PREGNENOLONE
  11. COLACE [Concomitant]
     Active Substance: DOCUSATE SODIUM
  12. CRESTOR [Concomitant]
     Active Substance: ROSUVASTATIN CALCIUM

REACTIONS (3)
  - Off label use [Unknown]
  - Product use issue [Unknown]
  - Contusion [Not Recovered/Not Resolved]

NARRATIVE: CASE EVENT DATE: 20080331
